FAERS Safety Report 9194715 (Version 1)
Quarter: 2013Q1

REPORT INFORMATION
  Report Type: Spontaneous
  Country: US (occurrence: US)
  Receive Date: 20130327
  Receipt Date: 20130327
  Transmission Date: 20140127
  Serious: No
  Sender: FDA-Public Use
  Company Number: US-ALLERGAN-1207814US

PATIENT
  Sex: Female

DRUGS (5)
  1. LATISSE 0.03% [Suspect]
     Indication: GROWTH OF EYELASHES
     Dosage: 2 GTT, QHS
     Route: 061
     Dates: start: 201104, end: 201108
  2. PERMANENT MAKE-UP EYELINER [Concomitant]
  3. LEXAPRO [Concomitant]
     Indication: DEPRESSION
     Dosage: UNK
     Route: 048
  4. CLONIDINE [Concomitant]
     Indication: PRODUCT USED FOR UNKNOWN INDICATION
  5. BONIVA [Concomitant]
     Indication: PRODUCT USED FOR UNKNOWN INDICATION
     Dosage: 150 MG, Q MONTH
     Route: 048

REACTIONS (1)
  - Hair growth abnormal [Unknown]
